FAERS Safety Report 16771440 (Version 2)
Quarter: 2019Q3

REPORT INFORMATION
  Report Type: Spontaneous
  Country: FR (occurrence: FR)
  Receive Date: 20190904
  Receipt Date: 20190909
  Transmission Date: 20191005
  Serious: Yes (Hospitalization, Other)
  Sender: FDA-Public Use
  Company Number: FR-PFIZER INC-2019377215

PATIENT
  Age: 56 Year
  Sex: Male
  Weight: 62 kg

DRUGS (9)
  1. CISPLATINE MYLAN [Suspect]
     Active Substance: CISPLATIN
     Indication: SQUAMOUS CELL CARCINOMA OF PHARYNX
     Dosage: 170 MILLIGRAM, QD
     Route: 042
     Dates: start: 20190405, end: 20190405
  2. FLUOROURACILE PFIZER [Suspect]
     Active Substance: FLUOROURACIL
     Indication: SQUAMOUS CELL CARCINOMA OF PHARYNX
     Dosage: 1700 MILLIGRAM, QD
     Route: 042
     Dates: start: 20190405, end: 20190408
  3. ZOPHREN [ONDANSETRON HYDROCHLORIDE] [Suspect]
     Active Substance: ONDANSETRON
     Indication: PREMEDICATION
     Dosage: 8 MILLIGRAM
     Route: 042
     Dates: start: 20190405, end: 20190409
  4. PANTOPRAZOLE [Suspect]
     Active Substance: PANTOPRAZOLE
     Dosage: 20 MILLIGRAM, QD
     Route: 048
     Dates: start: 20190405, end: 20190408
  5. TAMSULOSINE [TAMSULOSIN HYDROCHLORIDE] [Suspect]
     Active Substance: TAMSULOSIN HYDROCHLORIDE
     Dosage: UNK UNK, QD
     Route: 048
     Dates: start: 20190408, end: 20190415
  6. METHYLPREDNISOLONE SODIUM SUCCINATE. [Suspect]
     Active Substance: METHYLPREDNISOLONE SODIUM SUCCINATE
     Indication: PREMEDICATION
     Dosage: 60 MILLIGRAM, QD
     Route: 042
     Dates: start: 20190405, end: 20190408
  7. EMEND [Suspect]
     Active Substance: APREPITANT
     Indication: PREMEDICATION
     Dosage: UNK
     Route: 048
     Dates: start: 20190405, end: 20190409
  8. DOXYCYCLINE. [Suspect]
     Active Substance: DOXYCYCLINE
     Dosage: 100 MILLIGRAM, QD
     Route: 048
     Dates: start: 20190406, end: 20190415
  9. ERBITUX [Suspect]
     Active Substance: CETUXIMAB
     Indication: SQUAMOUS CELL CARCINOMA OF PHARYNX
     Dosage: 680 MILLIGRAM, QD
     Route: 042
     Dates: start: 20190405, end: 20190405

REACTIONS (1)
  - Acute kidney injury [Not Recovered/Not Resolved]

NARRATIVE: CASE EVENT DATE: 20190409
